FAERS Safety Report 13763977 (Version 1)
Quarter: 2017Q3

REPORT INFORMATION
  Report Type: Spontaneous
  Country: IT (occurrence: IT)
  Receive Date: 20170718
  Receipt Date: 20170718
  Transmission Date: 20171127
  Serious: Yes (Hospitalization)
  Sender: FDA-Public Use
  Company Number: IT-ABBVIE-17P-083-2041752-00

PATIENT
  Age: 3 Year
  Sex: Female

DRUGS (1)
  1. DEPAKINE [Suspect]
     Active Substance: VALPROATE SODIUM
     Indication: EPILEPSY
     Route: 048
     Dates: start: 20170301, end: 20170626

REACTIONS (6)
  - Sleep talking [Recovering/Resolving]
  - Irritability [Recovering/Resolving]
  - Hyperphagia [Recovering/Resolving]
  - Weight increased [Recovering/Resolving]
  - Sleep disorder [Recovering/Resolving]
  - Pain in extremity [Recovering/Resolving]

NARRATIVE: CASE EVENT DATE: 20170519
